FAERS Safety Report 4541581-7 (Version None)
Quarter: 2004Q4

REPORT INFORMATION
  Report Type: 
  Country: None (occurrence: None)
  Receive Date: 20041227
  Receipt Date: 20041210
  Transmission Date: 20050328
  Serious: Yes (Other)
  Sender: FDA-Public Use
  Company Number: GBR-2004-0001397

PATIENT
  Age: 67 Year
  Sex: Female

DRUGS (12)
  1. PALLADONE [Suspect]
     Dosage: SEE IMAGE
     Dates: start: 20041118, end: 20041124
  2. PALLADONE [Suspect]
     Dosage: SEE IMAGE
     Dates: start: 20041124
  3. PAROXETINE HCL [Suspect]
     Dosage: 20 MG, DAILY
  4. ZOLPIDEM TARTRATE [Concomitant]
  5. XANAX [Concomitant]
  6. ASAFLOW [Concomitant]
  7. OMEPRAZOLE [Concomitant]
  8. SOTALOL HCL [Concomitant]
  9. MOVICOL (SODIUM BICARBONATE, POTASSIUM CHLORIDE, SODIUM CHLORIDE, MACR [Concomitant]
  10. EVISTA [Concomitant]
  11. TRAZOLAN  (TRAZODONE HYDROCHLORIDE) [Concomitant]
  12. DURAGESIC [Concomitant]

REACTIONS (1)
  - DELUSIONAL DISORDER, PERSECUTORY TYPE [None]
